FAERS Safety Report 8693544 (Version 3)
Quarter: 2012Q4

REPORT INFORMATION
  Report Type: 
  Country: JP (occurrence: JP)
  Receive Date: 20120730
  Receipt Date: 20120830
  Transmission Date: 20130627
  Serious: Yes (Hospitalization)
  Sender: FDA-Public Use
  Company Number: JP-GENZYME-FLUD-1001525

PATIENT
  Age: 7 Year
  Sex: Female

DRUGS (6)
  1. FLUDARA [Suspect]
     Indication: CORD BLOOD TRANSPLANT THERAPY
     Dosage: 30 mg/m2, on days -6 to -2
     Route: 065
  2. CYTARABINE [Suspect]
     Indication: CORD BLOOD TRANSPLANT THERAPY
     Dosage: 2 g/m2, on days -6 to -2
     Route: 065
  3. IDARUBICIN [Suspect]
     Indication: CORD BLOOD TRANSPLANT THERAPY
     Dosage: 10 mg/m2 on days -6 to -4
     Route: 065
  4. GRANULOCYTE COLONY STIMULATING FACTOR [Concomitant]
     Indication: ACUTE MYELOID LEUKAEMIA
     Dosage: 150 mcg, qd
     Route: 042
  5. GRANULOCYTE COLONY STIMULATING FACTOR [Concomitant]
     Dosage: 200 mcg, qd
     Route: 042
  6. GRANULOCYTE COLONY STIMULATING FACTOR [Concomitant]
     Dosage: 300 mcg, qd
     Route: 042

REACTIONS (1)
  - Transplant rejection [Unknown]
